FAERS Safety Report 24258184 (Version 1)
Quarter: 2024Q3

REPORT INFORMATION
  Report Type: Report from Study
  Country: SE (occurrence: SE)
  Receive Date: 20240828
  Receipt Date: 20240828
  Transmission Date: 20241017
  Serious: Yes (Death)
  Sender: MYLAN
  Company Number: SE-MYLANLABS-2024M1079226

PATIENT
  Age: 61 Year
  Sex: Male

DRUGS (2)
  1. OXALIPLATIN [Suspect]
     Active Substance: OXALIPLATIN
     Indication: Rectal cancer
     Dosage: 130 MILLIGRAM/SQ. METER, CYCLE {ON DAY 1 OF CYCLE. PART OF CAPOX REGIMEN. RECEIVED 3 CYCLES}
     Route: 065
  2. CAPECITABINE [Suspect]
     Active Substance: CAPECITABINE
     Indication: Rectal cancer
     Dosage: 1000 MILLIGRAM/SQ. METER, CYCLE {TWICE DAILY FOR 14 DAYS. PART OF CAPOX REGIMEN. RECEIVED 3 CYCLES}
     Route: 065

REACTIONS (1)
  - Sudden death [Fatal]
